FAERS Safety Report 8215588-2 (Version None)
Quarter: 2012Q1

REPORT INFORMATION
  Report Type: 
  Country: None (occurrence: None)
  Receive Date: 20120316
  Receipt Date: 20120302
  Transmission Date: 20120608
  Serious: Yes (Hospitalization)
  Sender: FDA-Public Use
  Company Number: FR-CELGENEUS-056-21880-12030406

PATIENT
  Sex: Male
  Weight: 65 kg

DRUGS (4)
  1. REVLIMID [Suspect]
     Dosage: 25 MILLIGRAM
     Route: 048
     Dates: start: 20080114, end: 20080201
  2. REVLIMID [Suspect]
     Dosage: 15 MILLIGRAM
     Route: 048
     Dates: start: 20080212
  3. DECTANCYL [Concomitant]
     Route: 065
     Dates: start: 20080114, end: 20080201
  4. DECTANCYL [Concomitant]
     Route: 065
     Dates: start: 20080212

REACTIONS (8)
  - FATIGUE [None]
  - ANAEMIA [None]
  - OEDEMA PERIPHERAL [None]
  - ARTHRALGIA [None]
  - BONE PAIN [None]
  - SOMNOLENCE [None]
  - TINNITUS [None]
  - PAIN IN EXTREMITY [None]
